FAERS Safety Report 16990620 (Version 2)
Quarter: 2019Q4

REPORT INFORMATION
  Report Type: Report from Study
  Country: ZA (occurrence: ZA)
  Receive Date: 20191104
  Receipt Date: 20191203
  Transmission Date: 20200122
  Serious: Yes (Hospitalization)
  Sender: FDA-Public Use
  Company Number: ZA-JNJFOC-20191043332

PATIENT
  Age: 48 Year
  Sex: Female
  Weight: 114 kg

DRUGS (7)
  1. DYNA INDAPAMIDE [Concomitant]
     Active Substance: INDAPAMIDE
     Indication: HYPERTENSION
     Route: 048
     Dates: start: 2015
  2. ASPAVOR [Concomitant]
     Active Substance: ATORVASTATIN
     Indication: HYPERCHOLESTEROLAEMIA
     Route: 048
     Dates: start: 2015
  3. DORMONOCT [Concomitant]
     Active Substance: LOPRAZOLAM
     Indication: INSOMNIA
     Route: 048
     Dates: start: 201607
  4. YELATE [Concomitant]
     Active Substance: DULOXETINE HYDROCHLORIDE
     Indication: DEPRESSION
     Route: 048
     Dates: start: 20161118
  5. RELVAR ELLIPTA [Concomitant]
     Active Substance: FLUTICASONE FUROATE\VILANTEROL TRIFENATATE
     Indication: ASTHMA
     Dosage: 92/ 22
     Route: 045
     Dates: start: 20190117
  6. ESKETAMINE [Suspect]
     Active Substance: ESKETAMINE
     Indication: DEPRESSION
     Dosage: MOST RECENT: 25-OCT-2019; MED KIT NUMBER 5690-08, -09, -10.
     Dates: start: 20181004
  7. PURBAC [Concomitant]
     Active Substance: SULFAMETHOXAZOLE\TRIMETHOPRIM
     Indication: URINARY TRACT INFECTION
     Route: 048
     Dates: start: 20191018, end: 20191023

REACTIONS (1)
  - Cystitis [Recovered/Resolved]

NARRATIVE: CASE EVENT DATE: 20191028
